FAERS Safety Report 21522212 (Version 2)
Quarter: 2022Q4

REPORT INFORMATION
  Report Type: Spontaneous
  Country: ES (occurrence: ES)
  Receive Date: 20221028
  Receipt Date: 20221201
  Transmission Date: 20230112
  Serious: Yes (Death, Other)
  Sender: FDA-Public Use
  Company Number: ES-GILEAD-2022-0602984

PATIENT

DRUGS (1)
  1. YESCARTA [Suspect]
     Active Substance: AXICABTAGENE CILOLEUCEL
     Indication: Product used for unknown indication
     Dosage: UNK
     Route: 065
     Dates: start: 20210426, end: 20210426

REACTIONS (6)
  - Disease progression [Fatal]
  - Febrile neutropenia [Unknown]
  - Disease recurrence [Unknown]
  - Mass [Unknown]
  - Pain [Unknown]
  - Colitis [Unknown]
